FAERS Safety Report 22098994 (Version 1)
Quarter: 2023Q1

REPORT INFORMATION
  Report Type: Spontaneous
  Country: US (occurrence: None)
  Receive Date: 20230315
  Receipt Date: 20230315
  Transmission Date: 20230417
  Serious: Yes (Death)
  Sender: FDA-Public Use
  Company Number: None

PATIENT
  Sex: Male

DRUGS (9)
  1. ENVARSUS XR [Suspect]
     Active Substance: TACROLIMUS
     Indication: Renal transplant
     Dosage: FREQUENCY : DAILY;?
     Route: 048
     Dates: start: 20220929
  2. mycophenolic 180mg tablets [Concomitant]
     Dates: start: 20220929
  3. atovaquone 750mg/5ml suspension [Concomitant]
     Dates: start: 20221116
  4. isosorbide mononitrate 120mg ER tablets [Concomitant]
  5. metoprolol succinate 100mg tablets [Concomitant]
  6. OMEPRAZOLE [Concomitant]
     Active Substance: OMEPRAZOLE
  7. PREDNISONE [Concomitant]
     Active Substance: PREDNISONE
     Dates: start: 20220929
  8. sulfameth/trimeth 400/80mg tablets [Concomitant]
  9. valganciclovir 450mg tablets [Concomitant]

REACTIONS (2)
  - Haematoma [None]
  - Renal transplant failure [None]
